FAERS Safety Report 13622788 (Version 1)
Quarter: 2017Q2

REPORT INFORMATION
  Report Type: Spontaneous
  Country: DE (occurrence: DE)
  Receive Date: 20170607
  Receipt Date: 20170607
  Transmission Date: 20170830
  Serious: Yes (Other)
  Sender: FDA-Public Use
  Company Number: DE-TEVA-773619GER

PATIENT
  Age: 54 Year
  Sex: Female

DRUGS (4)
  1. VENLAFAXINE [Suspect]
     Active Substance: VENLAFAXINE HYDROCHLORIDE
     Route: 048
     Dates: start: 20160803, end: 20160817
  2. VALDOXAN [Interacting]
     Active Substance: AGOMELATINE
     Route: 048
     Dates: start: 20160711, end: 20160810
  3. VALDOXAN [Interacting]
     Active Substance: AGOMELATINE
     Route: 048
     Dates: start: 20160811, end: 20160817
  4. VALDOXAN [Interacting]
     Active Substance: AGOMELATINE
     Route: 048
     Dates: start: 20160818, end: 20160823

REACTIONS (2)
  - Drug interaction [Unknown]
  - Hepatic enzyme increased [Recovered/Resolved]

NARRATIVE: CASE EVENT DATE: 20160823
